FAERS Safety Report 9618870 (Version 2)
Quarter: 2013Q4

REPORT INFORMATION
  Report Type: Report from Study
  Country: PL (occurrence: PL)
  Receive Date: 20131014
  Receipt Date: 20131014
  Transmission Date: 20140711
  Serious: Yes (Hospitalization)
  Sender: FDA-Public Use
  Company Number: PL-ASTELLAS-2012EU010292

PATIENT
  Age: 41 Year
  Sex: Male

DRUGS (6)
  1. TACROLIMUS MR4 CAPSULES [Suspect]
     Indication: RENAL TRANSPLANT
     Dosage: 14 MG, UID/QD
     Route: 048
     Dates: start: 20120820, end: 20121107
  2. MYCOPHENOLATE MOFETIL [Suspect]
     Indication: RENAL TRANSPLANT
     Dosage: 1 G, BID
     Route: 048
     Dates: start: 20120820
  3. CLEXANE [Concomitant]
     Indication: VENOUS THROMBOSIS
     Dosage: 40 MG, BID
     Route: 042
     Dates: start: 20120820
  4. BISOPROLOL [Concomitant]
     Indication: HYPERTENSION
     Dosage: 10 MG, UID/QD
     Route: 048
     Dates: start: 2009
  5. FUROSEMID                          /00032601/ [Concomitant]
     Indication: RENAL FAILURE
     Dosage: 80 MG, UID/QD
     Route: 048
     Dates: start: 20121029
  6. NITRENDYPINA [Concomitant]
     Indication: HYPERTENSION
     Dosage: UNK
     Route: 048
     Dates: start: 2009

REACTIONS (3)
  - Venous thrombosis limb [Not Recovered/Not Resolved]
  - Haematoma [Recovered/Resolved]
  - Microangiopathy [Not Recovered/Not Resolved]
